FAERS Safety Report 5591243-2 (Version None)
Quarter: 2008Q1

REPORT INFORMATION
  Report Type: 
  Country: None (occurrence: None)
  Receive Date: 20080110
  Receipt Date: 20080110
  Transmission Date: 20080703
  Serious: No
  Sender: FDA-Public Use
  Company Number: None

PATIENT
  Age: 25 Day
  Sex: Male
  Weight: 0.93 kg

DRUGS (1)
  1. MIDAZOLAM HCL [Suspect]
     Indication: SEDATION
     Dosage: 0.1 MG ONCE IV BOLUS
     Route: 040

REACTIONS (1)
  - CONVULSION [None]
